FAERS Safety Report 8813847 (Version 4)
Quarter: 2013Q1

REPORT INFORMATION
  Report Type: Spontaneous
  Country: US (occurrence: US)
  Receive Date: 20120928
  Receipt Date: 20130307
  Transmission Date: 20140127
  Serious: No
  Sender: FDA-Public Use
  Company Number: US-BIOGENIDEC-2012BI041013

PATIENT
  Age: 43 None
  Sex: Female

DRUGS (1)
  1. TYSABRI [Suspect]
     Indication: MULTIPLE SCLEROSIS
     Route: 042
     Dates: start: 20120625

REACTIONS (20)
  - Haemorrhage [Not Recovered/Not Resolved]
  - Anaemia [Not Recovered/Not Resolved]
  - Iron deficiency [Not Recovered/Not Resolved]
  - Haemoglobin decreased [Not Recovered/Not Resolved]
  - Uterine leiomyoma [Not Recovered/Not Resolved]
  - Hearing impaired [Not Recovered/Not Resolved]
  - Sinus disorder [Not Recovered/Not Resolved]
  - Contusion [Not Recovered/Not Resolved]
  - Lower extremity mass [Not Recovered/Not Resolved]
  - Skin discolouration [Not Recovered/Not Resolved]
  - Ligament sprain [Recovered/Resolved]
  - Tendon injury [Unknown]
  - Pain [Recovered/Resolved]
  - Aphagia [Recovered/Resolved]
  - Gingival pain [Recovered/Resolved]
  - Ear disorder [Recovered/Resolved]
  - Upper respiratory tract congestion [Not Recovered/Not Resolved]
  - Fall [Recovered/Resolved]
  - Sinusitis [Recovered/Resolved]
  - Headache [Not Recovered/Not Resolved]
